FAERS Safety Report 18712372 (Version 1)
Quarter: 2021Q1

REPORT INFORMATION
  Report Type: Spontaneous
  Country: US (occurrence: US)
  Receive Date: 20210107
  Receipt Date: 20210107
  Transmission Date: 20210419
  Serious: No
  Sender: FDA-Public Use
  Company Number: US-MYLANLABS-2020M1102972

PATIENT
  Sex: Female

DRUGS (1)
  1. ESTRADIOL VAGINAL CREAM USP [Suspect]
     Active Substance: ESTRADIOL
     Indication: VULVOVAGINAL DRYNESS
     Dosage: UNK UNK, BID (HALF A GRAM 2 TIMES A WEEK )
     Route: 067

REACTIONS (3)
  - Device issue [Not Recovered/Not Resolved]
  - Product prescribing error [Unknown]
  - Incorrect dose administered [Not Recovered/Not Resolved]
